FAERS Safety Report 17897750 (Version 3)
Quarter: 2020Q3

REPORT INFORMATION
  Report Type: Report from Study
  Country: US (occurrence: US)
  Receive Date: 20200616
  Receipt Date: 20200810
  Transmission Date: 20201103
  Serious: Yes (Other)
  Sender: FDA-Public Use
  Company Number: US-TAIHO ONCOLOGY  INC-EU-2020-01686

PATIENT
  Age: 67 Year
  Sex: Male

DRUGS (17)
  1. HYDROCODONE BITARTRA [Concomitant]
  2. HYDROCODONE BITARTRA [Concomitant]
     Dosage: CRYSTALS
  3. LONSURF [Suspect]
     Active Substance: TIPIRACIL HYDROCHLORIDE\TRIFLURIDINE
     Dosage: DOSE, FREQUENCY, CURRENT CYCLE UNKNOWN
     Route: 048
     Dates: start: 20200803
  4. GABAPENTIN. [Concomitant]
     Active Substance: GABAPENTIN
  5. SIMVASTATIN. [Concomitant]
     Active Substance: SIMVASTATIN
  6. HUMALOG MIX [Concomitant]
     Active Substance: INSULIN LISPRO
  7. VITAMINS [Concomitant]
     Active Substance: VITAMINS
  8. HYDROCODONE BITARTRA [Concomitant]
  9. TYLENOL [Concomitant]
     Active Substance: ACETAMINOPHEN
  10. HYDROCODONE BITARTRA [Concomitant]
  11. METFORMIN [Concomitant]
     Active Substance: METFORMIN HYDROCHLORIDE
  12. LONSURF [Suspect]
     Active Substance: TIPIRACIL HYDROCHLORIDE\TRIFLURIDINE
     Indication: COLORECTAL CANCER
     Dosage: CYCLE 2:DOSE AND FREQUENCY UNKNOWN
     Route: 048
     Dates: start: 20200608
  13. HUMALOG [Concomitant]
     Active Substance: INSULIN LISPRO
     Dosage: 100 /ML INJECTION
  14. METFORMIN [Concomitant]
     Active Substance: METFORMIN HYDROCHLORIDE
  15. LONSURF [Suspect]
     Active Substance: TIPIRACIL HYDROCHLORIDE\TRIFLURIDINE
     Indication: CARCINOID TUMOUR
     Dosage: CYCLE 1
     Route: 048
     Dates: start: 20200428
  16. PIOGLITAZONE. [Concomitant]
     Active Substance: PIOGLITAZONE
  17. HYDROCO/APAP [Concomitant]
     Active Substance: ACETAMINOPHEN\HYDROCODONE
     Dosage: 10?325 MG

REACTIONS (10)
  - Platelet count decreased [Not Recovered/Not Resolved]
  - Incorrect dosage administered [Unknown]
  - Feeling cold [Not Recovered/Not Resolved]
  - Hypoaesthesia [Not Recovered/Not Resolved]
  - Peripheral swelling [Not Recovered/Not Resolved]
  - Peripheral coldness [Unknown]
  - Hot flush [Not Recovered/Not Resolved]
  - White blood cell count decreased [Not Recovered/Not Resolved]
  - Constipation [Not Recovered/Not Resolved]
  - Red blood cell count decreased [Unknown]

NARRATIVE: CASE EVENT DATE: 20200505
